FAERS Safety Report 7010799-6 (Version None)
Quarter: 2010Q3

REPORT INFORMATION
  Report Type: 
  Country: None (occurrence: None)
  Receive Date: 20100923
  Receipt Date: 20100917
  Transmission Date: 20110219
  Serious: Yes (Other)
  Sender: FDA-Public Use
  Company Number: PHHY2010US32340

PATIENT
  Sex: Female
  Weight: 104.32 kg

DRUGS (6)
  1. EXTAVIA [Suspect]
     Indication: MULTIPLE SCLEROSIS
     Dosage: 0.25 MG, QOD
     Route: 058
     Dates: start: 20100430, end: 20100620
  2. BACLOFEN [Concomitant]
     Dosage: 20 MG, QD
  3. NEURONTIN [Concomitant]
     Dosage: 300 MG, BID
     Dates: start: 20100509
  4. TRAZODONE HCL [Concomitant]
     Dosage: 50 MG, HS
  5. AMBIEN [Concomitant]
     Dosage: 10 MG,PRN
  6. HYDROCODONE [Concomitant]
     Dosage: UNK, PRN

REACTIONS (5)
  - DEPRESSION [None]
  - JOINT SWELLING [None]
  - OEDEMA PERIPHERAL [None]
  - PAIN IN EXTREMITY [None]
  - SUICIDAL IDEATION [None]
